FAERS Safety Report 7866461-0 (Version None)
Quarter: 2011Q4

REPORT INFORMATION
  Report Type: 
  Country: None (occurrence: None)
  Receive Date: 20111028
  Receipt Date: 20110621
  Transmission Date: 20120403
  Serious: No
  Sender: FDA-Public Use
  Company Number: US-GLAXOSMITHKLINE-A0932221A

PATIENT
  Age: 79 Year
  Sex: Male

DRUGS (6)
  1. ADVAIR DISKUS 100/50 [Suspect]
     Indication: ASTHMA
     Dosage: 1PUFF PER DAY
     Route: 055
     Dates: start: 20080601
  2. OMEPRAZOLE [Concomitant]
  3. CALCIUM CARBONATE [Concomitant]
     Dosage: 600MG PER DAY
  4. AVAPRO [Concomitant]
  5. LIPITOR [Concomitant]
  6. ASPIRIN [Concomitant]

REACTIONS (2)
  - DYSPHONIA [None]
  - MUSCLE TIGHTNESS [None]
